FAERS Safety Report 24922595 (Version 1)
Quarter: 2025Q1

REPORT INFORMATION
  Report Type: Spontaneous
  Country: FR (occurrence: FR)
  Receive Date: 20250204
  Receipt Date: 20250204
  Transmission Date: 20250409
  Serious: Yes (Other)
  Sender: AMGEN
  Company Number: FR-AMGEN-FRASP2025017479

PATIENT
  Age: 38 Year
  Sex: Male

DRUGS (14)
  1. FILGRASTIM [Suspect]
     Active Substance: FILGRASTIM
     Indication: Immune effector cell-associated haematotoxicity
     Route: 065
  2. FILGRASTIM [Suspect]
     Active Substance: FILGRASTIM
     Indication: Off label use
  3. THROMBOPOIETIN [Suspect]
     Active Substance: THROMBOPOIETIN
     Indication: Immune effector cell-associated haematotoxicity
     Route: 065
  4. FLUDARABINE [Concomitant]
     Active Substance: FLUDARABINE PHOSPHATE
     Indication: Lymphodepletion
     Route: 065
  5. CYCLOPHOSPHAMIDE [Concomitant]
     Active Substance: CYCLOPHOSPHAMIDE
     Indication: Lymphodepletion
     Route: 065
  6. TOCILIZUMAB [Concomitant]
     Active Substance: TOCILIZUMAB
     Route: 065
  7. GLOFITAMAB [Concomitant]
     Active Substance: GLOFITAMAB
  8. RITUXIMAB [Concomitant]
     Active Substance: RITUXIMAB
  9. IFOSFAMIDE [Concomitant]
     Active Substance: IFOSFAMIDE
  10. CARBOPLATIN [Concomitant]
     Active Substance: CARBOPLATIN
  11. ETOPOSIDE [Concomitant]
     Active Substance: ETOPOSIDE
  12. DOXORUBICIN [Concomitant]
     Active Substance: DOXORUBICIN
  13. VINCRISTINE [Concomitant]
     Active Substance: VINCRISTINE
  14. PREDNISONE [Concomitant]
     Active Substance: PREDNISONE

REACTIONS (4)
  - Lymphadenopathy [Unknown]
  - Immune effector cell-associated haematotoxicity [Unknown]
  - Drug ineffective for unapproved indication [Unknown]
  - Off label use [Unknown]
